FAERS Safety Report 20649430 (Version 1)
Quarter: 2022Q1

REPORT INFORMATION
  Report Type: Spontaneous
  Country: PL (occurrence: PL)
  Receive Date: 20220329
  Receipt Date: 20220329
  Transmission Date: 20220423
  Serious: Yes (Other)
  Sender: FDA-Public Use
  Company Number: PL-ABBVIE-22K-129-4335737-00

PATIENT
  Age: 40 Year
  Sex: Male
  Weight: 91 kg

DRUGS (4)
  1. VALPROATE SODIUM [Suspect]
     Active Substance: VALPROATE SODIUM
     Indication: Myelitis
     Route: 048
     Dates: start: 20170125, end: 20170207
  2. CEFTRIAXONE SODIUM [Suspect]
     Active Substance: CEFTRIAXONE SODIUM
     Indication: Myelitis
     Route: 042
     Dates: start: 20170118, end: 20170203
  3. CEFTRIAXONE SODIUM [Suspect]
     Active Substance: CEFTRIAXONE SODIUM
     Indication: Neurosyphilis
  4. ACYCLOVIR [Suspect]
     Active Substance: ACYCLOVIR
     Indication: Neurosyphilis
     Route: 042
     Dates: start: 20170118, end: 20170207

REACTIONS (2)
  - Hepatocellular injury [Recovered/Resolved]
  - Rash macular [Recovered/Resolved]

NARRATIVE: CASE EVENT DATE: 20170203
